FAERS Safety Report 6112699-2 (Version None)
Quarter: 2009Q1

REPORT INFORMATION
  Report Type: 
  Country: None (occurrence: None)
  Receive Date: 20090312
  Receipt Date: 20090305
  Transmission Date: 20090719
  Serious: Yes (Hospitalization)
  Sender: FDA-Public Use
  Company Number: GB-AMGEN-US330980

PATIENT
  Sex: Female
  Weight: 77 kg

DRUGS (8)
  1. ENBREL [Suspect]
     Indication: RHEUMATOID ARTHRITIS
     Route: 058
     Dates: start: 20050111, end: 20080615
  2. FERROUS SULFATE TAB [Concomitant]
     Dosage: UNKNOWN
     Route: 065
  3. VITAMIN B-12 [Concomitant]
     Dosage: UNKNOWN
     Route: 065
  4. OMEPRAZOLE [Concomitant]
     Dosage: UNKNOWN
     Route: 065
  5. PARACETAMOL [Concomitant]
     Dosage: UNKNOWN
     Route: 065
  6. PERINDOPRIL ERBUMINE [Concomitant]
     Dosage: UNKNOWN
     Route: 065
  7. PREDNISOLONE [Concomitant]
     Dosage: UNKNOWN
     Route: 065
  8. INSULIN [Concomitant]
     Dosage: UNKNOWN
     Route: 065

REACTIONS (4)
  - CONDITION AGGRAVATED [None]
  - FAT NECROSIS [None]
  - RHEUMATOID ARTHRITIS [None]
  - SCAR [None]
